FAERS Safety Report 18693609 (Version 1)
Quarter: 2021Q1

REPORT INFORMATION
  Report Type: Spontaneous
  Country: US (occurrence: US)
  Receive Date: 20210104
  Receipt Date: 20210104
  Transmission Date: 20210419
  Serious: No
  Sender: FDA-Public Use
  Company Number: US-DRREDDYS-USA/USA/20/0130405

PATIENT
  Age: 19 Year
  Sex: Female

DRUGS (1)
  1. ZENATANE [Suspect]
     Active Substance: ISOTRETINOIN
     Indication: PRODUCT USED FOR UNKNOWN INDICATION
     Dosage: RMA ISSUE DATE: 11/24/2020 12:00:00 AM, 7/18/2020 12:00:00 AM, 6/6/2020 12:00:00 AM
     Route: 048

REACTIONS (2)
  - Therapy cessation [Unknown]
  - Hepatic enzyme increased [Unknown]
